FAERS Safety Report 5606394-3 (Version None)
Quarter: 2008Q1

REPORT INFORMATION
  Report Type: 
  Country: None (occurrence: None)
  Receive Date: 20080129
  Receipt Date: 20071008
  Transmission Date: 20080703
  Serious: No
  Sender: FDA-Public Use
  Company Number: A0681222A

PATIENT
  Sex: Female
  Weight: 90.9 kg

DRUGS (10)
  1. WELLBUTRIN [Suspect]
     Indication: DRUG USE FOR UNKNOWN INDICATION
     Route: 065
  2. ADVAIR DISKUS 100/50 [Suspect]
     Indication: DRUG USE FOR UNKNOWN INDICATION
     Route: 055
  3. TYLENOL [Suspect]
     Indication: DRUG USE FOR UNKNOWN INDICATION
     Route: 065
  4. CYMBALTA [Suspect]
  5. ZOCOR [Concomitant]
  6. NAPROXIN [Concomitant]
  7. ASPIRIN [Concomitant]
  8. UNSPECIFIED MEDICATION [Concomitant]
  9. SINGULAIR [Concomitant]
  10. ZETIA [Concomitant]

REACTIONS (3)
  - CONSTIPATION [None]
  - DRY MOUTH [None]
  - DRY THROAT [None]
